FAERS Safety Report 5569752-1 (Version None)
Quarter: 2007Q4

REPORT INFORMATION
  Report Type: 
  Country: None (occurrence: None)
  Receive Date: 20071218
  Receipt Date: 20071210
  Transmission Date: 20080405
  Serious: Yes (Disabling)
  Sender: FDA-Public Use
  Company Number: 6039809

PATIENT
  Age: 57 Year
  Sex: Male

DRUGS (9)
  1. BISOPROLOL FUMARATE [Suspect]
     Indication: TACHYARRHYTHMIA
     Dosage: 1,25 MG (1,25 MG, 1 D) ORAL
     Route: 048
     Dates: start: 20061201
  2. LEVOTHYROXINE SODIUM [Suspect]
     Indication: DRUG USE FOR UNKNOWN INDICATION
     Dosage: 75 MCG (75 MCG, 1 D) ORAL
     Route: 048
     Dates: start: 20010101
  3. ALLOPURINOL TAB [Suspect]
     Indication: DRUG USE FOR UNKNOWN INDICATION
     Dosage: 200 M G, 1 D) ORAL
     Route: 048
     Dates: start: 19850101
  4. FLUVOXAMINE MALEATE [Suspect]
     Indication: DRUG USE FOR UNKNOWN INDICATION
     Dosage: 100 MG (100 MG, 1 D) ORAL
     Route: 048
     Dates: start: 19960101
  5. OMEPRAZOLE [Suspect]
     Indication: DRUG USE FOR UNKNOWN INDICATION
     Dosage: 10 MG (10 MG, 1 D) ORAL
     Route: 048
     Dates: start: 20000101
  6. LASILIX RETARD (CAPSULE) (FUROSEMIDE) [Suspect]
     Indication: DRUG USE FOR UNKNOWN INDICATION
     Dosage: 60 MG (60  MG, 1 D) ORAL
     Route: 048
     Dates: start: 19900101
  7. DIGOXIN TAB [Suspect]
     Indication: DRUG USE FOR UNKNOWN INDICATION
     Dosage: 0,25 MG (0,25 MG, 1 D) ORAL
     Route: 048
     Dates: start: 19900101
  8. SINTROM (TABLET) (ACENOCOUMAROL) [Suspect]
     Indication: DRUG USE FOR UNKNOWN INDICATION
     Dosage: 3 MG (3 MG, 1 D) ORAL
     Route: 048
     Dates: start: 19950101
  9. PANTESONE (CAPSULE) (TESTOSTERONE UNDECYLENATE) [Suspect]
     Indication: DRUG USE FOR UNKNOWN INDICATION
     Dosage: 40 MG (40 MG, 1 D) ORAL
     Route: 048
     Dates: start: 19980101, end: 20070101

REACTIONS (4)
  - JOINT SPRAIN [None]
  - MUSCLE RUPTURE [None]
  - SOFT TISSUE INJURY [None]
  - TENDON RUPTURE [None]
